FAERS Safety Report 18184061 (Version 2)
Quarter: 2020Q3

REPORT INFORMATION
  Report Type: Report from Study
  Country: GB (occurrence: GB)
  Receive Date: 20200821
  Receipt Date: 20200904
  Transmission Date: 20201103
  Serious: Yes (Hospitalization, Other)
  Sender: FDA-Public Use
  Company Number: GB-GILEAD-2020-0491506

PATIENT
  Age: 72 Year
  Sex: Female

DRUGS (5)
  1. IDELALISIB [Suspect]
     Active Substance: IDELALISIB
     Indication: B-CELL LYMPHOMA REFRACTORY
     Dosage: 150 MG, BID
     Route: 048
     Dates: start: 20180725, end: 20200714
  2. AZITHROMYCIN ANHYDROUS. [Concomitant]
     Active Substance: AZITHROMYCIN ANHYDROUS
  3. GRANULOCYTE COLONY STIMULATING FACTOR [Concomitant]
     Active Substance: GRANULOCYTE COLONY-STIMULATING FACTOR NOS
     Dosage: UNK
  4. SEPTRIN [Concomitant]
     Active Substance: SULFAMETHOXAZOLE\TRIMETHOPRIM
  5. ACICLOVIR [Concomitant]
     Active Substance: ACYCLOVIR

REACTIONS (4)
  - Infective exacerbation of bronchiectasis [Unknown]
  - Hypogammaglobulinaemia [Unknown]
  - Neutropenia [Not Recovered/Not Resolved]
  - Pseudomonas infection [Unknown]

NARRATIVE: CASE EVENT DATE: 202007
